FAERS Safety Report 5804001-8 (Version None)
Quarter: 2008Q3

REPORT INFORMATION
  Report Type: 
  Country: None (occurrence: None)
  Receive Date: 20080703
  Receipt Date: 20080623
  Transmission Date: 20090109
  Serious: No
  Sender: FDA-Public Use
  Company Number: 2008BI014029

PATIENT
  Age: 56 Year
  Sex: Female
  Weight: 72.5755 kg

DRUGS (10)
  1. TYSABRI [Suspect]
     Indication: MULTIPLE SCLEROSIS
     Dosage: 300 MG; QM; IV
     Route: 042
     Dates: start: 20080104
  2. LISINOPRIL [Concomitant]
  3. HYDROCHLORATHIAZIDE [Concomitant]
  4. PAXIL [Concomitant]
  5. XANAX [Concomitant]
  6. BENTYL [Concomitant]
  7. CARAFATE [Concomitant]
  8. NEXIUM [Concomitant]
  9. BACLOFEN [Concomitant]
  10. DITROPAN [Concomitant]

REACTIONS (6)
  - AMNESIA [None]
  - CONDITION AGGRAVATED [None]
  - CONFUSIONAL STATE [None]
  - DIZZINESS [None]
  - ORTHOSTATIC HYPOTENSION [None]
  - SYNCOPE [None]
